FAERS Safety Report 20054719 (Version 1)
Quarter: 2021Q4

REPORT INFORMATION
  Report Type: Spontaneous
  Country: US (occurrence: None)
  Receive Date: 20211110
  Receipt Date: 20211110
  Transmission Date: 20220303
  Serious: No
  Sender: FDA-Public Use
  Company Number: None

PATIENT

DRUGS (2)
  1. INSULIN ASPART PROTAMINE AND INSULIN ASPART MIX 70/30 [Suspect]
     Active Substance: INSULIN ASPART
     Indication: Product used for unknown indication
  2. NOVOLOG MIX 70/30 [Suspect]
     Active Substance: INSULIN ASPART
     Indication: Product used for unknown indication

REACTIONS (2)
  - Product use complaint [None]
  - Product label issue [None]
